FAERS Safety Report 15332762 (Version 3)
Quarter: 2020Q3

REPORT INFORMATION
  Report Type: Spontaneous
  Country: PE (occurrence: PE)
  Receive Date: 20180830
  Receipt Date: 20180917
  Transmission Date: 20201104
  Serious: Yes (Hospitalization, Other)
  Sender: FDA-Public Use
  Company Number: PE-B.I. PHARMACEUTICALS,INC./RIDGEFIELD-2018-BI-042586

PATIENT
  Age: 87 Year
  Sex: Female

DRUGS (10)
  1. FLUTICASONE W/SALMETEROL [Concomitant]
     Active Substance: FLUTICASONE PROPIONATE\SALMETEROL XINAFOATE
     Indication: CHRONIC OBSTRUCTIVE PULMONARY DISEASE
     Route: 065
  2. BISOPROLOL [Concomitant]
     Active Substance: BISOPROLOL
     Indication: ATRIAL FIBRILLATION
     Route: 065
  3. OLANZAPINE. [Concomitant]
     Active Substance: OLANZAPINE
     Indication: PRODUCT USED FOR UNKNOWN INDICATION
     Route: 065
  4. IPRATROPIUM BROMIDE. [Concomitant]
     Active Substance: IPRATROPIUM BROMIDE
     Indication: PULMONARY FIBROSIS
     Route: 065
  5. AMITRIPTYLINE [Concomitant]
     Active Substance: AMITRIPTYLINE
     Indication: PRODUCT USED FOR UNKNOWN INDICATION
     Route: 065
  6. VARGATEF [Suspect]
     Active Substance: NINTEDANIB
     Indication: CHRONIC OBSTRUCTIVE PULMONARY DISEASE
     Route: 065
     Dates: start: 201808, end: 20180821
  7. AMIKACIN. [Suspect]
     Active Substance: AMIKACIN
     Indication: PRODUCT USED FOR UNKNOWN INDICATION
     Route: 065
  8. PARACETAMOL [Concomitant]
     Active Substance: ACETAMINOPHEN
     Indication: PAIN IN EXTREMITY
     Route: 065
  9. IRBESARTAN AND HYDROCHLOROTHIAZIDE [Concomitant]
     Active Substance: HYDROCHLOROTHIAZIDE\IRBESARTAN
     Indication: HYPOTENSION
     Route: 065
  10. AMLODIPIN [Concomitant]
     Active Substance: AMLODIPINE BESYLATE
     Indication: HYPERTENSION
     Route: 065

REACTIONS (19)
  - Dyspnoea [Unknown]
  - Disorientation [Unknown]
  - Blood urea increased [Not Recovered/Not Resolved]
  - Lumbar vertebral fracture [Unknown]
  - Lung infiltration [Recovered/Resolved]
  - Spinal osteoarthritis [Unknown]
  - Acute kidney injury [Recovered/Resolved]
  - Oropharyngeal pain [Unknown]
  - Productive cough [Not Recovered/Not Resolved]
  - Hypotension [Unknown]
  - Cough [Unknown]
  - Oxygen saturation decreased [Unknown]
  - Pulmonary oedema [Unknown]
  - Leukocytosis [Unknown]
  - Chronic kidney disease [Unknown]
  - Blood creatinine increased [Recovered/Resolved]
  - Pneumonia bacterial [Unknown]
  - Chronic obstructive pulmonary disease [Unknown]
  - Medication error [Unknown]

NARRATIVE: CASE EVENT DATE: 201808
